FAERS Safety Report 21130121 (Version 1)
Quarter: 2022Q3

REPORT INFORMATION
  Report Type: Spontaneous
  Country: None (occurrence: US)
  Receive Date: 20220726
  Receipt Date: 20220726
  Transmission Date: 20221027
  Serious: No
  Sender: FDA-Public Use
  Company Number: US-ITALFARMACO SPA-2131232

PATIENT
  Age: 73 Year
  Sex: Female

DRUGS (15)
  1. TIGLUTIK [Suspect]
     Active Substance: RILUZOLE
     Indication: Amyotrophic lateral sclerosis
     Dates: start: 20211007
  2. ATROPINE [Concomitant]
     Active Substance: ATROPINE
  3. SEREVENT DISKUS [Concomitant]
     Active Substance: SALMETEROL XINAFOATE
  4. TRIAMCINOLONE ACETONIDE [Concomitant]
     Active Substance: TRIAMCINOLONE ACETONIDE
  5. NUEDEXTA [Concomitant]
     Active Substance: DEXTROMETHORPHAN HYDROBROMIDE\QUINIDINE SULFATE
  6. MIRALAX [Concomitant]
     Active Substance: POLYETHYLENE GLYCOL 3350
  7. TRIPLE FLEX [Concomitant]
  8. VITAMIN D3 [Concomitant]
     Active Substance: CHOLECALCIFEROL
  9. VITAMIN D2 [Concomitant]
     Active Substance: ERGOCALCIFEROL
  10. VITAMIN E [Concomitant]
     Active Substance: .ALPHA.-TOCOPHEROL
  11. ASPIRIN [Concomitant]
     Active Substance: ASPIRIN
  12. FLONASE [Concomitant]
     Active Substance: FLUTICASONE PROPIONATE
  13. TYLENOL [Concomitant]
     Active Substance: ACETAMINOPHEN
  14. VITAMINS [Concomitant]
     Active Substance: VITAMINS
  15. CALCIUM CITRATE MALATE;MAGNESIUM CITRATE MALATE [Concomitant]

REACTIONS (3)
  - Fatigue [Unknown]
  - Asthenia [Unknown]
  - Gait disturbance [Unknown]
